FAERS Safety Report 9919610 (Version 1)
Quarter: 2014Q1

REPORT INFORMATION
  Report Type: Report from Study
  Country: RU (occurrence: RU)
  Receive Date: 20140224
  Receipt Date: 20140224
  Transmission Date: 20141002
  Serious: Yes (Other)
  Sender: FDA-Public Use
  Company Number: RU-US-EMD SERONO, INC.-7251732

PATIENT
  Age: 33 Year
  Sex: Female
  Weight: 59 kg

DRUGS (2)
  1. OVITRELLE [Suspect]
     Indication: IN VITRO FERTILISATION
  2. DIPHERELINE                        /00975901/ [Concomitant]
     Indication: OVULATION INDUCTION
     Dosage: 3.75 (UNITS PRETYPED IU, PRESUMABLY MG)

REACTIONS (2)
  - Haemorrhage [Unknown]
  - Ovarian hyperstimulation syndrome [Unknown]
